FAERS Safety Report 23503957 (Version 2)
Quarter: 2024Q1

REPORT INFORMATION
  Report Type: Spontaneous
  Country: US (occurrence: US)
  Receive Date: 20240209
  Receipt Date: 20240320
  Transmission Date: 20240410
  Serious: Yes (Hospitalization, Congenital Anomaly, Other)
  Sender: FDA-Public Use
  Company Number: US-CIPLA LTD.-2024US01341

PATIENT

DRUGS (3)
  1. NADOLOL [Suspect]
     Active Substance: NADOLOL
     Dosage: 60 MILLIGRAM PER DAY
     Route: 064
  2. MAGNESIUM [Suspect]
     Active Substance: MAGNESIUM
     Dosage: 1 G/H
     Route: 064
  3. MAGNESIUM [Suspect]
     Active Substance: MAGNESIUM
     Dosage: UNK
     Route: 064

REACTIONS (3)
  - Long QT syndrome congenital [Not Recovered/Not Resolved]
  - Foetal growth restriction [Unknown]
  - Foetal exposure during pregnancy [Unknown]
